FAERS Safety Report 23104050 (Version 1)
Quarter: 2023Q4

REPORT INFORMATION
  Report Type: Spontaneous
  Country: US (occurrence: US)
  Receive Date: 20231025
  Receipt Date: 20231025
  Transmission Date: 20240110
  Serious: No
  Sender: FDA-Public Use
  Company Number: US-009507513-2310USA003389

PATIENT
  Age: 86 Year
  Sex: Male

DRUGS (2)
  1. INVANZ [Suspect]
     Active Substance: ERTAPENEM SODIUM
     Indication: Pleural effusion
     Dosage: FOR TWO MONTHS
  2. INVANZ [Suspect]
     Active Substance: ERTAPENEM SODIUM
     Indication: Liver abscess

REACTIONS (1)
  - Incorrect product administration duration [Unknown]
